FAERS Safety Report 18742383 (Version 1)
Quarter: 2021Q1

REPORT INFORMATION
  Report Type: Report from Study
  Country: US (occurrence: US)
  Receive Date: 20210114
  Receipt Date: 20210114
  Transmission Date: 20210419
  Serious: Yes (Other)
  Sender: FDA-Public Use
  Company Number: US-JNJFOC-20201254810

PATIENT
  Sex: Female
  Weight: 57.2 kg

DRUGS (1)
  1. EPOPROSTENOL SODIUM. [Suspect]
     Active Substance: EPOPROSTENOL SODIUM
     Indication: PULMONARY HYPERTENSION
     Dosage: 16 NG/KG/MIN
     Route: 042

REACTIONS (4)
  - Underdose [Unknown]
  - Device occlusion [Unknown]
  - Musculoskeletal discomfort [Unknown]
  - Thrombosis in device [Unknown]
